FAERS Safety Report 11631857 (Version 1)
Quarter: 2015Q4

REPORT INFORMATION
  Report Type: Spontaneous
  Country: US (occurrence: None)
  Receive Date: 20151014
  Receipt Date: 20151014
  Transmission Date: 20160304
  Serious: No
  Sender: FDA-Public Use
  Company Number: None

PATIENT
  Age: 70 Year
  Sex: Male
  Weight: 70.31 kg

DRUGS (1)
  1. SILDENAFIL CITRATE. [Suspect]
     Active Substance: SILDENAFIL CITRATE
     Indication: ERECTILE DYSFUNCTION
     Dosage: 5 TABLETS 1 HR BEFORE NEEDED
     Route: 048
     Dates: start: 20150617, end: 20150628

REACTIONS (2)
  - Headache [None]
  - Flushing [None]

NARRATIVE: CASE EVENT DATE: 20150928
